FAERS Safety Report 9239809 (Version 4)
Quarter: 2013Q2

REPORT INFORMATION
  Report Type: Spontaneous
  Country: US (occurrence: US)
  Receive Date: 20130418
  Receipt Date: 20130613
  Transmission Date: 20140414
  Serious: Yes (Hospitalization)
  Sender: FDA-Public Use
  Company Number: US-B.I. PHARMACEUTICALS,INC./RIDGEFIELD-2013-BI-10570BP

PATIENT
  Age: 80 Year
  Sex: Female

DRUGS (8)
  1. PRADAXA [Suspect]
     Indication: ATRIAL FIBRILLATION
     Dosage: 300 MG
     Route: 048
  2. ASPIRIN [Concomitant]
     Dosage: 81 MG
  3. CELECOXIB [Concomitant]
  4. DILTIAZEM ER [Concomitant]
  5. HCTZ [Concomitant]
  6. LISINOPRIL [Concomitant]
  7. METAXALONE [Concomitant]
  8. VYTORIN [Concomitant]

REACTIONS (2)
  - Cerebral haemorrhage [Recovered/Resolved]
  - Subarachnoid haemorrhage [Recovered/Resolved]
